FAERS Safety Report 9210769 (Version 2)
Quarter: 2013Q2

REPORT INFORMATION
  Report Type: Spontaneous
  Country: FR (occurrence: FR)
  Receive Date: 20130404
  Receipt Date: 20130625
  Transmission Date: 20140414
  Serious: Yes (Death, Hospitalization)
  Sender: FDA-Public Use
  Company Number: FR-GLAXOSMITHKLINE-B0878650A

PATIENT
  Age: 32 Year
  Sex: Female

DRUGS (4)
  1. LAMICTAL [Suspect]
     Indication: EPILEPSY
     Dosage: 25MG PER DAY
     Route: 048
     Dates: start: 20130210, end: 20130224
  2. DEPAKINE [Concomitant]
     Indication: EPILEPSY
     Route: 065
  3. KEPPRA [Concomitant]
     Indication: EPILEPSY
     Route: 065
  4. RIVOTRIL [Concomitant]
     Indication: EPILEPSY
     Route: 065

REACTIONS (15)
  - Toxic epidermal necrolysis [Fatal]
  - Acute respiratory distress syndrome [Fatal]
  - Pyrexia [Unknown]
  - Rash vesicular [Recovering/Resolving]
  - Mucous membrane disorder [Recovering/Resolving]
  - Blister [Recovering/Resolving]
  - Convulsion [Unknown]
  - Eye disorder [Unknown]
  - Skin lesion [Recovering/Resolving]
  - Renal failure acute [Unknown]
  - Pain [Unknown]
  - Thrombosis [Unknown]
  - Cerebral haemorrhage [Fatal]
  - Haemorrhage [Unknown]
  - Septic shock [Unknown]
